FAERS Safety Report 8457935-2 (Version None)
Quarter: 2012Q2

REPORT INFORMATION
  Report Type: 
  Country: None (occurrence: None)
  Receive Date: 20120618
  Receipt Date: 20120618
  Transmission Date: 20120825
  Serious: Yes (Hospitalization)
  Sender: FDA-Public Use
  Company Number: None

PATIENT
  Sex: Female
  Weight: 36.8 kg

DRUGS (2)
  1. BORTEZOMIB [Suspect]
     Indication: COLON CANCER
     Dosage: 2.048 MG
     Dates: start: 20120516, end: 20120530
  2. PANITUMUMAB [Suspect]
     Indication: COLON CANCER
     Dosage: 220.80MG IV D 1 AND 15
     Route: 042
     Dates: start: 20120502, end: 20120530

REACTIONS (2)
  - MALAISE [None]
  - DEHYDRATION [None]
